FAERS Safety Report 10021613 (Version 1)
Quarter: 2014Q1

REPORT INFORMATION
  Report Type: Spontaneous
  Country: US (occurrence: None)
  Receive Date: 20140318
  Receipt Date: 20140318
  Transmission Date: 20141002
  Serious: Yes (Hospitalization, Disabling)
  Sender: FDA-Public Use
  Company Number: None

PATIENT
  Age: 24 Year
  Sex: Male
  Weight: 108.86 kg

DRUGS (1)
  1. RISPERIDONE [Suspect]
     Indication: DRUG THERAPY
     Route: 048
     Dates: start: 20140121, end: 20140310

REACTIONS (2)
  - Adverse drug reaction [None]
  - Unevaluable event [None]
